FAERS Safety Report 8290408-9 (Version None)
Quarter: 2012Q2

REPORT INFORMATION
  Report Type: 
  Country: None (occurrence: None)
  Receive Date: 20120412
  Receipt Date: 20120412
  Transmission Date: 20120825
  Serious: Yes (Hospitalization)
  Sender: FDA-Public Use
  Company Number: None

PATIENT
  Age: 56 Year
  Sex: Female
  Weight: 98.4 kg

DRUGS (2)
  1. GAMMAGARD LIQUID [Suspect]
     Indication: IMMUNODEFICIENCY COMMON VARIABLE
     Dosage: GAMMAGARD 50 GMS MONTHLY IV
     Route: 042
     Dates: start: 20120321
  2. GAMMAGARD [Suspect]

REACTIONS (1)
  - MENINGITIS ASEPTIC [None]
